FAERS Safety Report 4310229-9 (Version None)
Quarter: 2004Q1

REPORT INFORMATION
  Report Type: 
  Country: None (occurrence: None)
  Receive Date: 20040301
  Receipt Date: 20040301
  Transmission Date: 20041129
  Serious: Yes (Hospitalization)
  Sender: FDA-Public Use
  Company Number: None

PATIENT
  Age: 2 Year
  Sex: Male
  Weight: 10.4 kg

DRUGS (6)
  1. ALLOPURINOL [Suspect]
     Dosage: 35 MG Q8H ORAL
     Route: 048
     Dates: start: 20040215, end: 20040224
  2. ACYCLOVIR [Suspect]
     Dosage: 125 MG Q8H INTRAVENOUS
     Route: 042
     Dates: start: 20020222, end: 20040229
  3. VINCRISTINE [Concomitant]
  4. ETOPOSIDE [Concomitant]
  5. ONDANSETRON HCL [Concomitant]
  6. CYTARABINE [Concomitant]

REACTIONS (2)
  - ERYTHEMA [None]
  - PRURITUS [None]
